FAERS Safety Report 20520667 (Version 1)
Quarter: 2022Q1

REPORT INFORMATION
  Report Type: Spontaneous
  Country: US (occurrence: US)
  Receive Date: 20220225
  Receipt Date: 20220225
  Transmission Date: 20220424
  Serious: No
  Sender: FDA-Public Use
  Company Number: US-FERRINGPH-2021FE02641

PATIENT
  Age: 33 Year
  Sex: Male

DRUGS (1)
  1. DDAVP [Suspect]
     Active Substance: DESMOPRESSIN ACETATE
     Indication: Product used for unknown indication
     Dosage: 10 MCG/ 0.1 ML
     Route: 065

REACTIONS (3)
  - Adverse event [Unknown]
  - Recalled product administered [Unknown]
  - Poor quality product administered [Unknown]

NARRATIVE: CASE EVENT DATE: 20200826
